FAERS Safety Report 25533134 (Version 1)
Quarter: 2025Q3

REPORT INFORMATION
  Report Type: Spontaneous
  Country: US (occurrence: US)
  Receive Date: 20250709
  Receipt Date: 20250709
  Transmission Date: 20251021
  Serious: Yes (Hospitalization, Other)
  Sender: AUROBINDO
  Company Number: US-MLMSERVICE-20250620-PI550894-00369-1

PATIENT
  Age: 54 Year
  Sex: Female

DRUGS (3)
  1. WARFARIN SODIUM [Interacting]
     Active Substance: WARFARIN SODIUM
     Indication: Aortic valve stenosis
     Route: 065
  2. HERBALS\TURMERIC [Interacting]
     Active Substance: HERBALS\TURMERIC
     Indication: Supplementation therapy
     Dosage: 1 DOSAGE FORM, ONCE A DAY (
     Route: 065
  3. HERBALS\TURMERIC [Interacting]
     Active Substance: HERBALS\TURMERIC
     Dosage: 5 DOSAGE FORM, ONCE A DAY (
     Route: 065

REACTIONS (3)
  - Haematochezia [Recovered/Resolved]
  - International normalised ratio increased [Recovering/Resolving]
  - Drug interaction [Recovering/Resolving]
